FAERS Safety Report 19680865 (Version 1)
Quarter: 2021Q3

REPORT INFORMATION
  Report Type: Spontaneous
  Country: GB (occurrence: GB)
  Receive Date: 20210810
  Receipt Date: 20210810
  Transmission Date: 20211014
  Serious: Yes (Hospitalization, Other)
  Sender: FDA-Public Use
  Company Number: GB-ADVANZ PHARMA-202107005478

PATIENT

DRUGS (4)
  1. CICLOSPORIN [Suspect]
     Active Substance: CYCLOSPORINE
     Dosage: 6 CYCLICAL
     Route: 042
  2. AZATHIOPRINE. [Suspect]
     Active Substance: AZATHIOPRINE
     Indication: POLYCHONDRITIS
     Dosage: UNK
  3. PREDNISOLONE. [Suspect]
     Active Substance: PREDNISOLONE
     Indication: POLYCHONDRITIS
     Dosage: 60 MG, QD
  4. CICLOSPORIN [Suspect]
     Active Substance: CYCLOSPORINE
     Indication: POLYCHONDRITIS
     Dosage: CYCLICAL
     Route: 042

REACTIONS (9)
  - Lymphopenia [Unknown]
  - Respiratory failure [Recovering/Resolving]
  - Viral infection [Recovering/Resolving]
  - Pneumocystis jirovecii infection [Recovering/Resolving]
  - Hypogammaglobulinaemia [Unknown]
  - Bacterial disease carrier [Recovering/Resolving]
  - Lower respiratory tract infection [Recovering/Resolving]
  - Steroid diabetes [Unknown]
  - Weight increased [Recovering/Resolving]
